FAERS Safety Report 4930755-9 (Version None)
Quarter: 2006Q1

REPORT INFORMATION
  Report Type: 
  Country: None (occurrence: None)
  Receive Date: 20060227
  Receipt Date: 20060213
  Transmission Date: 20060701
  Serious: Yes (Other)
  Sender: FDA-Public Use
  Company Number: 2006021458

PATIENT
  Age: 64 Year
  Sex: Male
  Weight: 129.2752 kg

DRUGS (14)
  1. VIAGRA [Suspect]
     Indication: ERECTILE DYSFUNCTION
     Dosage: 100 MG (100 MG, AS NECESSARY), ORAL
     Route: 048
  2. ALTACE [Concomitant]
  3. COREG [Concomitant]
  4. EFFEXOR [Concomitant]
  5. TRICOR [Concomitant]
  6. AVANDIA [Concomitant]
  7. AMARYL [Concomitant]
  8. ALL OTHER THERAPEUTIC PRODUCTS (ALL OTHER THERAPEUTIC PRODUCTS) [Concomitant]
  9. CADUET [Concomitant]
  10. DIOVAN COMP (HYDROCHLOROTHIAZIDE, VALSARTAN) [Concomitant]
  11. POTASSIUM CHLORIDE [Concomitant]
  12. CATAPRES-TTS-1 [Concomitant]
  13. METFORMIN HCL [Concomitant]
  14. OMACOR (OMEGA-3 MARINE TRIGLYCERIDES) [Concomitant]

REACTIONS (4)
  - CEREBROVASCULAR ACCIDENT [None]
  - DRUG INEFFECTIVE [None]
  - MEMORY IMPAIRMENT [None]
  - VISUAL ACUITY REDUCED [None]
